FAERS Safety Report 14254209 (Version 2)
Quarter: 2018Q1

REPORT INFORMATION
  Report Type: Spontaneous
  Country: PL (occurrence: PL)
  Receive Date: 20171206
  Receipt Date: 20180111
  Transmission Date: 20180508
  Serious: Yes (Hospitalization, Other)
  Sender: FDA-Public Use
  Company Number: PL-009507513-1712POL001265

PATIENT
  Age: 60 Year
  Sex: Female

DRUGS (2)
  1. DIPROPHOS [Suspect]
     Active Substance: BETAMETHASONE DIPROPIONATE\BETAMETHASONE SODIUM PHOSPHATE
     Indication: BACK PAIN
     Dosage: 1 DF(1 AMPULE, INJECTION IN THE BACK IN THE LUMBAR REGION)
     Dates: start: 201707
  2. SIOFOR [Concomitant]
     Active Substance: METFORMIN HYDROCHLORIDE
     Indication: DIABETES MELLITUS
     Dosage: DOSE-1000, 3 TIMES A DAY

REACTIONS (3)
  - Visual impairment [Recovering/Resolving]
  - Paralysis [Recovering/Resolving]
  - Balance disorder [Recovering/Resolving]

NARRATIVE: CASE EVENT DATE: 201708
